FAERS Safety Report 8842843 (Version 1)
Quarter: 2012Q4

REPORT INFORMATION
  Report Type: 
  Country: NL (occurrence: NL)
  Receive Date: 20121016
  Receipt Date: 20121016
  Transmission Date: 20130627
  Serious: Yes (Life-Threatening, Hospitalization)
  Sender: FDA-Public Use
  Company Number: NL-BRISTOL-MYERS SQUIBB COMPANY-17028267

PATIENT
  Age: 25 Year
  Sex: Male

DRUGS (2)
  1. ABILIFY [Suspect]
     Indication: SCHIZOPHRENIA, PARANOID TYPE
     Dates: start: 20120826, end: 20120831
  2. OLANZAPINE [Suspect]

REACTIONS (3)
  - Psychotic disorder [Recovering/Resolving]
  - Suicidal ideation [Recovering/Resolving]
  - Akathisia [Recovering/Resolving]
